FAERS Safety Report 12559016 (Version 1)
Quarter: 2016Q3

REPORT INFORMATION
  Report Type: Report from Study
  Country: US (occurrence: US)
  Receive Date: 20160715
  Receipt Date: 20160715
  Transmission Date: 20161109
  Serious: Yes (Hospitalization, Other)
  Sender: FDA-Public Use
  Company Number: US-BRISTOL-MYERS SQUIBB COMPANY-BMS-2016-056178

PATIENT
  Age: 56 Year
  Sex: Male
  Weight: 59.1 kg

DRUGS (2)
  1. LASIX [Concomitant]
     Active Substance: FUROSEMIDE
     Indication: PRODUCT USED FOR UNKNOWN INDICATION
     Dosage: 20 MG, BID
     Route: 065
     Dates: start: 20160425, end: 20160711
  2. NIVOLUMAB [Suspect]
     Active Substance: NIVOLUMAB
     Indication: NON-SMALL CELL LUNG CANCER
     Dosage: 177 MG, UNK
     Route: 042
     Dates: start: 20150702, end: 20160429

REACTIONS (6)
  - Tachycardia [Unknown]
  - Haematemesis [Unknown]
  - Anaemia [Unknown]
  - Haemoptysis [Unknown]
  - Aspiration [Unknown]
  - Melaena [Unknown]

NARRATIVE: CASE EVENT DATE: 20160626
